FAERS Safety Report 21234453 (Version 2)
Quarter: 2022Q4

REPORT INFORMATION
  Report Type: Spontaneous
  Country: US (occurrence: None)
  Receive Date: 20220820
  Receipt Date: 20221005
  Transmission Date: 20230112
  Serious: No
  Sender: FDA-Public Use
  Company Number: 2022A291782

PATIENT
  Age: 70 Year
  Sex: Female

DRUGS (1)
  1. BUDESONIDE\FORMOTEROL\GLYCOPYRRONIUM [Suspect]
     Active Substance: BUDESONIDE\FORMOTEROL\GLYCOPYRRONIUM
     Indication: COVID-19 pneumonia
     Dosage: BREZTRI 160/9/4.8 MCG TWO PUFFS TWICE A DAY
     Route: 055
     Dates: start: 2022

REACTIONS (7)
  - Dyspnoea [Recovered/Resolved]
  - Oxygen saturation decreased [Recovered/Resolved]
  - Gait disturbance [Recovered/Resolved]
  - Device use issue [Recovered/Resolved]
  - Wrong technique in device usage process [Unknown]
  - Off label use [Not Recovered/Not Resolved]
  - Device delivery system issue [Unknown]

NARRATIVE: CASE EVENT DATE: 20220101
